FAERS Safety Report 7853446-3 (Version None)
Quarter: 2011Q3

REPORT INFORMATION
  Report Type: 
  Country: None (occurrence: None)
  Receive Date: 20110915
  Receipt Date: 20110622
  Transmission Date: 20111222
  Serious: Yes (Other)
  Sender: FDA-Public Use
  Company Number: 2011029000

PATIENT
  Sex: Male
  Weight: 110 kg

DRUGS (4)
  1. HUMATE P (FACTOR VIII (ANTIHAEMOPHILIC FACTOR)) [Concomitant]
  2. DEXAMETHASONE [Concomitant]
  3. SIMVASTATIN [Concomitant]
  4. PRIVIGEN [Suspect]
     Indication: IDIOPATHIC THROMBOCYTOPENIC PURPURA
     Dosage: (100 G QD, 100 G/24 HOURS X 4 DAYS INTRAVENOUS (NOT OTHERWISE SPECIFIED)
     Route: 042
     Dates: start: 20110617, end: 20110620

REACTIONS (4)
  - HAEMOLYTIC ANAEMIA [None]
  - BLOOD BILIRUBIN INCREASED [None]
  - BLOOD LACTATE DEHYDROGENASE INCREASED [None]
  - HAEMOLYSIS [None]
